FAERS Safety Report 8092883-1 (Version None)
Quarter: 2012Q1

REPORT INFORMATION
  Report Type: 
  Country: None (occurrence: None)
  Receive Date: 20120128
  Receipt Date: 20110727
  Transmission Date: 20120608
  Serious: No
  Sender: FDA-Public Use
  Company Number: US-ABBOTT-11P-163-0841899-00

PATIENT
  Age: 56 Year
  Sex: Female

DRUGS (3)
  1. HORMONE REPLACEMENT [Concomitant]
     Indication: PRODUCT USED FOR UNKNOWN INDICATION
     Dosage: DAILY
  2. MAXZIDE [Concomitant]
     Indication: BLOOD PRESSURE
     Dosage: DAILY
  3. HUMIRA [Suspect]
     Indication: ANKYLOSING SPONDYLITIS
     Dates: start: 20110601

REACTIONS (1)
  - ANGER [None]
